FAERS Safety Report 6252183-9 (Version None)
Quarter: 2009Q2

REPORT INFORMATION
  Report Type: 
  Country: None (occurrence: None)
  Receive Date: 20090629
  Receipt Date: 20090625
  Transmission Date: 20091009
  Serious: Yes (Other)
  Sender: FDA-Public Use
  Company Number: SP02244

PATIENT
  Age: 67 Year
  Sex: Female

DRUGS (4)
  1. MOVIPREP [Suspect]
     Indication: COLONOSCOPY
     Dosage: 1 LIT, ORAL
     Route: 048
     Dates: start: 20071001, end: 20071001
  2. MOVIPREP [Suspect]
     Indication: PREOPERATIVE CARE
     Dosage: 1 LIT, ORAL
     Route: 048
     Dates: start: 20071001, end: 20071001
  3. LEVOTHYROXINE SODIUM [Concomitant]
  4. TRAVATAN [Concomitant]

REACTIONS (2)
  - BLOOD PRESSURE INCREASED [None]
  - CONJUNCTIVAL HAEMORRHAGE [None]
